FAERS Safety Report 11257856 (Version 3)
Quarter: 2015Q3

REPORT INFORMATION
  Report Type: Spontaneous
  Country: JP (occurrence: JP)
  Receive Date: 20150710
  Receipt Date: 20150821
  Transmission Date: 20151125
  Serious: Yes (Death)
  Sender: FDA-Public Use
  Company Number: JP-ABBVIE-15K-087-1423980-00

PATIENT
  Age: 79 Year
  Sex: Male
  Weight: 50.4 kg

DRUGS (38)
  1. NIFEDIPINE. [Concomitant]
     Active Substance: NIFEDIPINE
     Indication: PRODUCT USED FOR UNKNOWN INDICATION
     Dosage: AFTER BREAKFAST AND DINNER
     Route: 048
     Dates: start: 20150602, end: 20150615
  2. OLMESARTAN MEDOXOMIL. [Concomitant]
     Active Substance: OLMESARTAN MEDOXOMIL
     Dosage: AFTER BREAKFAST AND DINNER
     Dates: start: 20150619, end: 20150625
  3. ALLOPURINOL. [Concomitant]
     Active Substance: ALLOPURINOL
     Dosage: AFTER BREAKFAST
     Route: 048
     Dates: start: 20150619, end: 20150625
  4. RABEPRAZOLE SODIUM. [Concomitant]
     Active Substance: RABEPRAZOLE SODIUM
     Dosage: AFTER BREAKFAST
     Route: 048
     Dates: start: 20150619, end: 20150625
  5. TRIMEBUTINE MALEATE [Concomitant]
     Active Substance: TRIMEBUTINE MALEATE
     Dosage: AFTER BREAKFAST, LUNCH AND DINNER
     Route: 048
     Dates: start: 20150619, end: 20150625
  6. ASACOL [Concomitant]
     Active Substance: MESALAMINE
     Indication: PRODUCT USED FOR UNKNOWN INDICATION
     Dosage: AFTER BREAKFAST, LUNCH AND DINNER
     Route: 048
     Dates: start: 20150602, end: 20150615
  7. PREDNISOLONE. [Concomitant]
     Active Substance: PREDNISOLONE
     Dosage: AFTER BREAKFAST AND LUNCH
     Route: 048
     Dates: start: 20150619, end: 20150625
  8. PENTASA [Concomitant]
     Active Substance: MESALAMINE
     Indication: PRODUCT USED FOR UNKNOWN INDICATION
  9. AZATHIOPRINE. [Concomitant]
     Active Substance: AZATHIOPRINE
     Dosage: AFTER BREAKFAST
     Route: 048
     Dates: start: 20150616, end: 20150618
  10. NIFEDIPINE. [Concomitant]
     Active Substance: NIFEDIPINE
     Dosage: AFTER BREAKFAST AND DINNER
     Route: 048
     Dates: start: 20150616, end: 20150618
  11. MOSAPRIDE CITRATE [Concomitant]
     Active Substance: MOSAPRIDE CITRATE
     Dosage: AFTER BREAKFAST, LUNCH AND DINNER
     Route: 048
     Dates: start: 20150619, end: 20150625
  12. FLUNITRAZEPAM [Concomitant]
     Active Substance: FLUNITRAZEPAM
     Indication: PRODUCT USED FOR UNKNOWN INDICATION
     Dosage: AT BED TIME
     Route: 048
     Dates: start: 20150612, end: 20150621
  13. AZATHIOPRINE. [Concomitant]
     Active Substance: AZATHIOPRINE
     Dosage: AFTER BREAKFAST
     Route: 048
     Dates: start: 20150619, end: 20150625
  14. OLMESARTAN MEDOXOMIL. [Concomitant]
     Active Substance: OLMESARTAN MEDOXOMIL
     Indication: PRODUCT USED FOR UNKNOWN INDICATION
     Dosage: AFTER BREAKFAST AND DINNER
     Route: 048
     Dates: start: 20150602, end: 20150615
  15. OLMESARTAN MEDOXOMIL. [Concomitant]
     Active Substance: OLMESARTAN MEDOXOMIL
     Dosage: AFTER BREAKFAST AND DINNER
     Dates: start: 20150616, end: 20150618
  16. ALLOPURINOL. [Concomitant]
     Active Substance: ALLOPURINOL
     Dosage: AFTER BREAKFAST
     Route: 048
     Dates: start: 20150616, end: 20150618
  17. RABEPRAZOLE SODIUM. [Concomitant]
     Active Substance: RABEPRAZOLE SODIUM
     Indication: PRODUCT USED FOR UNKNOWN INDICATION
     Dosage: AFTER BREAKFAST
     Route: 048
     Dates: start: 20150602, end: 20150615
  18. TRIMEBUTINE MALEATE [Concomitant]
     Active Substance: TRIMEBUTINE MALEATE
     Indication: PRODUCT USED FOR UNKNOWN INDICATION
     Dosage: AFTER BREAKFAST, LUNCH AND DINNER
     Route: 048
     Dates: start: 20150602, end: 20150615
  19. ALENDRONATE SODIUM HYDRATE [Concomitant]
     Active Substance: ALENDRONATE SODIUM
     Indication: PRODUCT USED FOR UNKNOWN INDICATION
     Dosage: FRIDAYS
     Route: 048
     Dates: start: 20150605, end: 20150619
  20. ALLOPURINOL. [Concomitant]
     Active Substance: ALLOPURINOL
     Indication: PRODUCT USED FOR UNKNOWN INDICATION
     Dosage: AFTER BREAKFAST
     Route: 048
     Dates: start: 20150602, end: 20150615
  21. TRIMEBUTINE MALEATE [Concomitant]
     Active Substance: TRIMEBUTINE MALEATE
     Dosage: AFTER BREAKFAST, LUNCH AND DINNER
     Route: 048
     Dates: start: 20150616, end: 20150618
  22. HUMIRA [Suspect]
     Active Substance: ADALIMUMAB
     Indication: COLITIS ULCERATIVE
     Route: 058
     Dates: start: 20150624, end: 20150624
  23. ASACOL [Concomitant]
     Active Substance: MESALAMINE
     Dosage: AFTER BREAKFAST, LUNCH AND DINNER
     Route: 048
     Dates: start: 20150619, end: 20150625
  24. MOSAPRIDE CITRATE [Concomitant]
     Active Substance: MOSAPRIDE CITRATE
     Dosage: AFTER BREAKFAST, LUNCH AND DINNER
     Route: 048
     Dates: start: 20150616, end: 20150618
  25. PREDNISOLONE. [Concomitant]
     Active Substance: PREDNISOLONE
     Indication: PRODUCT USED FOR UNKNOWN INDICATION
     Dosage: AFTER BREAKFAST AND LUNCH
     Route: 048
     Dates: start: 20150605, end: 20150616
  26. PREDNISOLONE. [Concomitant]
     Active Substance: PREDNISOLONE
     Dosage: AFTER BREAKFAST AND LUNCH
     Route: 048
     Dates: start: 20150616, end: 20150618
  27. SULFAMETHOXAZOLE AND TRIMETHOPRIM [Concomitant]
     Active Substance: SULFAMETHOXAZOLE\TRIMETHOPRIM
     Indication: PRODUCT USED FOR UNKNOWN INDICATION
     Dosage: AFTER BREAKFAST
     Route: 048
     Dates: start: 20150605, end: 20150615
  28. SULFAMETHOXAZOLE AND TRIMETHOPRIM [Concomitant]
     Active Substance: SULFAMETHOXAZOLE\TRIMETHOPRIM
     Dosage: AFTER BREAKFAST
     Route: 048
     Dates: start: 20150619, end: 20150625
  29. FLUNITRAZEPAM [Concomitant]
     Active Substance: FLUNITRAZEPAM
     Dosage: AT BED TIME
     Route: 048
     Dates: start: 20150622, end: 20150625
  30. NIFEDIPINE. [Concomitant]
     Active Substance: NIFEDIPINE
     Dosage: AFTER BREAKFAST AND DINNER
     Route: 048
     Dates: start: 20150619, end: 20150625
  31. ASACOL [Concomitant]
     Active Substance: MESALAMINE
     Dosage: AFTER BREAKFAST, LUNCH AND DINNER
     Route: 048
     Dates: start: 20150616, end: 20150618
  32. MOSAPRIDE CITRATE [Concomitant]
     Active Substance: MOSAPRIDE CITRATE
     Indication: PRODUCT USED FOR UNKNOWN INDICATION
     Dosage: AFTER BREAKFAST, LUNCH AND DINNER
     Route: 048
     Dates: start: 20150602, end: 20150615
  33. SULFAMETHOXAZOLE AND TRIMETHOPRIM [Concomitant]
     Active Substance: SULFAMETHOXAZOLE\TRIMETHOPRIM
     Dosage: AFTER BREAKFAST
     Route: 048
     Dates: start: 20150616, end: 20150618
  34. ITRACONAZOLE. [Concomitant]
     Active Substance: ITRACONAZOLE
     Indication: PRODUCT USED FOR UNKNOWN INDICATION
     Dosage: BETWEEN BREAKFAST AND LUNCH
     Route: 048
     Dates: start: 20150615, end: 20150625
  35. CYCLOPHOSPHAMIDE. [Concomitant]
     Active Substance: CYCLOPHOSPHAMIDE
     Indication: PRODUCT USED FOR UNKNOWN INDICATION
  36. RABEPRAZOLE SODIUM. [Concomitant]
     Active Substance: RABEPRAZOLE SODIUM
     Dosage: AFTER BREAKFAST
     Route: 048
     Dates: start: 20150616, end: 20150618
  37. ALENDRONATE SODIUM HYDRATE [Concomitant]
     Active Substance: ALENDRONATE SODIUM
     Route: 048
     Dates: start: 20150616, end: 20150616
  38. AZATHIOPRINE. [Concomitant]
     Active Substance: AZATHIOPRINE
     Indication: PRODUCT USED FOR UNKNOWN INDICATION
     Dosage: AFTER BREAKFAST
     Route: 048
     Dates: start: 20150612, end: 20150615

REACTIONS (3)
  - Colitis ulcerative [Fatal]
  - Shock [Fatal]
  - Peritonitis [Fatal]

NARRATIVE: CASE EVENT DATE: 20150624
